FAERS Safety Report 6642261-4 (Version None)
Quarter: 2010Q1

REPORT INFORMATION
  Report Type: 
  Country: None (occurrence: None)
  Receive Date: 20100319
  Receipt Date: 20100311
  Transmission Date: 20100710
  Serious: Yes (Hospitalization, Other)
  Sender: FDA-Public Use
  Company Number: JP-BAYER-200912418BYL

PATIENT
  Age: 70 Year
  Sex: Male
  Weight: 60 kg

DRUGS (10)
  1. NEXAVAR [Suspect]
     Indication: HEPATIC NEOPLASM MALIGNANT
     Dosage: UNIT DOSE: 200 MG
     Route: 048
     Dates: start: 20090526, end: 20090711
  2. NEXAVAR [Suspect]
     Route: 048
     Dates: start: 20100301
  3. OXYCONTIN [Concomitant]
     Dosage: BEFORE NEXAVAR ADMINISTRATION
     Route: 048
     Dates: start: 20090101, end: 20090711
  4. MEDICON [Concomitant]
     Dosage: TOTAL DAILY DOSE: 60 MG
     Route: 048
     Dates: start: 20090101, end: 20090711
  5. CODEINE SULFATE [Concomitant]
     Dosage: BEFORE NEXAVAR ADMINISTRATION
     Route: 048
     Dates: start: 20090101
  6. OMEPRAL [Concomitant]
     Indication: DYSPEPSIA
     Route: 048
     Dates: start: 20090602, end: 20090711
  7. LOXONIN [Concomitant]
     Route: 048
     Dates: start: 20090602, end: 20090711
  8. MUCOSTA [Concomitant]
     Route: 048
     Dates: start: 20090602, end: 20090711
  9. PURSENNID [Concomitant]
     Route: 048
     Dates: start: 20090602, end: 20090711
  10. FENTANYL [Concomitant]
     Dosage: AS USED: 2.1 MG
     Route: 062
     Dates: start: 20090718

REACTIONS (6)
  - DELIRIUM [None]
  - DIARRHOEA [None]
  - ECZEMA [None]
  - HYPERTENSION [None]
  - NAUSEA [None]
  - PALMAR-PLANTAR ERYTHRODYSAESTHESIA SYNDROME [None]
